FAERS Safety Report 16728995 (Version 2)
Quarter: 2019Q3

REPORT INFORMATION
  Report Type: Spontaneous
  Country: US (occurrence: US)
  Receive Date: 20190822
  Receipt Date: 20190926
  Transmission Date: 20191005
  Serious: No
  Sender: FDA-Public Use
  Company Number: US-VERTEX PHARMACEUTICALS-2019-007781

PATIENT
  Age: 6 Year
  Sex: Male

DRUGS (11)
  1. PROAIR HFA [Concomitant]
     Active Substance: ALBUTEROL SULFATE
     Indication: WHEEZING
  2. SODIUM CHLORIDE. [Concomitant]
     Active Substance: SODIUM CHLORIDE
     Dosage: ONE VIAL BY NEBULIZER TWICE DAILY
  3. CLARITIN ALLERGIC [Concomitant]
     Indication: HYPERSENSITIVITY
     Dosage: 1 TSP ONCE DAILY
     Route: 048
  4. MIRALAX [Concomitant]
     Active Substance: POLYETHYLENE GLYCOL 3350
     Indication: CONSTIPATION
     Dosage: 1 CAPFUL (17 G) IN 4-8 OUNCES OF LIQUID
  5. PROAIR HFA [Concomitant]
     Active Substance: ALBUTEROL SULFATE
     Indication: COUGH
     Dosage: 108 (90 BASE) MCG/ACT
     Route: 055
  6. KALYDECO [Suspect]
     Active Substance: IVACAFTOR
     Indication: CYSTIC FIBROSIS
     Dosage: 150 MILLIGRAM, BID
     Route: 048
     Dates: start: 20181011, end: 2019
  7. ALBUTEROL SULFATE. [Concomitant]
     Active Substance: ALBUTEROL SULFATE
     Indication: COUGH
     Dosage: 1-2 VIALS IN NEBULIZER, Q4H
     Route: 055
  8. FLONASE ALLERGY RELIEF [Concomitant]
     Active Substance: FLUTICASONE PROPIONATE
     Indication: HYPERSENSITIVITY
     Dosage: 50 MCG/ACT, 1 SPRAY EACH NOSTRIL
  9. ALBUTEROL SULFATE. [Concomitant]
     Active Substance: ALBUTEROL SULFATE
     Indication: WHEEZING
  10. PULMOZYME [Concomitant]
     Active Substance: DORNASE ALFA
     Dosage: ONE VIAL (2.5 MG), ONCE DAILY
     Route: 055
  11. FLINTSTONES [Concomitant]
     Dosage: 60 MG, ONE TABLET PO ONCE DAILY
     Route: 048

REACTIONS (7)
  - Gastric disorder [Unknown]
  - Pollakiuria [Not Recovered/Not Resolved]
  - Alanine aminotransferase increased [Recovering/Resolving]
  - Haematuria [Not Recovered/Not Resolved]
  - Polyuria [Not Recovered/Not Resolved]
  - Dysuria [Not Recovered/Not Resolved]
  - Gamma-glutamyltransferase increased [Recovering/Resolving]

NARRATIVE: CASE EVENT DATE: 201907
